FAERS Safety Report 9482464 (Version 1)
Quarter: 2013Q3

REPORT INFORMATION
  Report Type: Spontaneous
  Country: CA (occurrence: None)
  Receive Date: 20130822
  Receipt Date: 20130822
  Transmission Date: 20140515
  Serious: Yes (Hospitalization, Other)
  Sender: FDA-Public Use
  Company Number: 2013AP007357

PATIENT
  Age: 35 Year
  Sex: Female

DRUGS (16)
  1. APO-DIVALPROEX [Suspect]
     Dosage: 750MG;TAB;PO;TID
     Route: 048
  2. ALLOPURINOL [Concomitant]
  3. ALTACE (RAMIPRIL) [Concomitant]
  4. DDAVP [Concomitant]
  5. DEPAKENE [Concomitant]
  6. ENTERIC ASPIRIN (ACETYLSALICYLIC ACID) [Concomitant]
  7. EPREX (EPOETIN ALFA) [Concomitant]
  8. EZETROL (EZETIMIBE) [Concomitant]
  9. FOLIC ACID (FOLIC ACID) [Concomitant]
  10. FUROSEMIDE (FUROSEMIDE) [Concomitant]
  11. HYDROCORTISONE (HYDROCORTISONE) [Concomitant]
  12. KEPPRA (LEVETIRACETAM) [Concomitant]
  13. L-THYROXINE [Concomitant]
  14. LEVEMIR (INSULIN DETEMIR) [Concomitant]
  15. NOVORAPID (INSULIN ASPART) [Concomitant]
  16. SODIUM BICARBONATE (SODIUM BICARBONATE) [Concomitant]

REACTIONS (3)
  - Convulsion [None]
  - Drug ineffective [None]
  - Product substitution issue [None]
